FAERS Safety Report 9101496 (Version 1)
Quarter: 2013Q1

REPORT INFORMATION
  Report Type: Spontaneous
  Country: US (occurrence: None)
  Receive Date: 20130220
  Receipt Date: 20130220
  Transmission Date: 20140127
  Serious: Yes (Hospitalization)
  Sender: FDA-Public Use
  Company Number: None

PATIENT
  Age: 52 Year
  Sex: Female
  Weight: 26.31 kg

DRUGS (1)
  1. ATOVASTATIN [Suspect]
     Route: 048
     Dates: start: 20130202, end: 20130212

REACTIONS (2)
  - Rhabdomyolysis [None]
  - Drug hypersensitivity [None]
